FAERS Safety Report 5874265-3 (Version None)
Quarter: 2008Q3

REPORT INFORMATION
  Report Type: 
  Country: None (occurrence: None)
  Receive Date: 20080908
  Receipt Date: 20080825
  Transmission Date: 20090109
  Serious: Yes (Life-Threatening, Hospitalization)
  Sender: FDA-Public Use
  Company Number: JP-ELI_LILLY_AND_COMPANY-JP200807003558

PATIENT
  Age: 76 Year
  Sex: Male
  Weight: 56 kg

DRUGS (4)
  1. GEMZAR [Suspect]
     Indication: PANCREATIC CARCINOMA STAGE IV
     Dosage: 400 MG, WEEKLY (1/W)
     Route: 042
     Dates: start: 20070821, end: 20070904
  2. GEMZAR [Suspect]
     Dosage: 300 MG, WEEKLY (1/W)
     Route: 042
     Dates: start: 20070911, end: 20070927
  3. KYTRIL [Concomitant]
     Indication: PROPHYLAXIS
     Dosage: 3 MG, DAILY (1/D)
     Route: 042
     Dates: start: 20070821, end: 20070927
  4. DECADRON [Concomitant]
     Indication: PROPHYLAXIS
     Dosage: 8 MG, DAILY (1/D)
     Route: 042
     Dates: start: 20070821, end: 20070927

REACTIONS (3)
  - HAEMOGLOBIN DECREASED [None]
  - NEUTROPHIL COUNT DECREASED [None]
  - PNEUMONIA CYTOMEGALOVIRAL [None]
